FAERS Safety Report 21383669 (Version 1)
Quarter: 2022Q3

REPORT INFORMATION
  Report Type: Spontaneous
  Country: SA (occurrence: SA)
  Receive Date: 20220928
  Receipt Date: 20220928
  Transmission Date: 20221027
  Serious: Yes (Other)
  Sender: FDA-Public Use
  Company Number: SA-STRIDES ARCOLAB LIMITED-2022SP012220

PATIENT
  Age: 74 Year
  Sex: Female

DRUGS (16)
  1. METRONIDAZOLE [Suspect]
     Active Substance: METRONIDAZOLE
     Indication: Evidence based treatment
     Dosage: 500 MILLIGRAM, TID (THREE TIMES DAILY)
     Route: 065
  2. METRONIDAZOLE [Suspect]
     Active Substance: METRONIDAZOLE
     Indication: Antibiotic therapy
  3. ACETAMINOPHEN [Concomitant]
     Active Substance: ACETAMINOPHEN
     Indication: Product used for unknown indication
     Dosage: UNK
     Route: 065
  4. ASPIRIN [Concomitant]
     Active Substance: ASPIRIN
     Indication: Product used for unknown indication
     Dosage: 81 MILLIGRAM, PER DAY
     Route: 065
  5. ATORVASTATIN [Concomitant]
     Active Substance: ATORVASTATIN
     Indication: Product used for unknown indication
     Dosage: 20 MILLIGRAM, PER DAY
     Route: 065
  6. CARBIDOPA\LEVODOPA [Concomitant]
     Active Substance: CARBIDOPA\LEVODOPA
     Indication: Parkinson^s disease
     Dosage: UNK, BID
     Route: 065
  7. LAMOTRIGINE [Concomitant]
     Active Substance: LAMOTRIGINE
     Indication: Bipolar disorder
     Dosage: 100 MILLIGRAM, TWICE A DAY
     Route: 065
  8. LOSARTAN AND HYDROCHLOROTHIAZIDE [Concomitant]
     Active Substance: HYDROCHLOROTHIAZIDE\LOSARTAN POTASSIUM
     Indication: Product used for unknown indication
     Dosage: UNK, PER DAY
     Route: 065
  9. MIRALAX [Concomitant]
     Active Substance: POLYETHYLENE GLYCOL 3350
     Indication: Product used for unknown indication
     Dosage: UNK
     Route: 065
  10. PIPERACILLIN SODIUM\TAZOBACTAM SODIUM [Concomitant]
     Active Substance: PIPERACILLIN SODIUM\TAZOBACTAM SODIUM
     Indication: Antibiotic therapy
     Dosage: 3.375 GRAM, TID (PER 8 HOURS)
     Route: 042
  11. MIRTAZAPINE [Concomitant]
     Active Substance: MIRTAZAPINE
     Indication: Bipolar disorder
     Dosage: 30 MILLIGRAM, PER DAY
     Route: 065
  12. OMEPRAZOLE [Concomitant]
     Active Substance: OMEPRAZOLE
     Indication: Antacid therapy
     Dosage: 20 MILLIGRAM, PER DAY
     Route: 065
  13. RISPERIDONE [Concomitant]
     Active Substance: RISPERIDONE
     Indication: Bipolar disorder
     Dosage: 1 MILLIGRAM, AT BED TIME
     Route: 065
  14. VALPROATE SODIUM [Concomitant]
     Active Substance: VALPROATE SODIUM
     Indication: Bipolar disorder
     Dosage: 500 MILLIGRAM, PER DAY
     Route: 065
  15. CEFUROXIME [Concomitant]
     Active Substance: CEFUROXIME
     Indication: Antibiotic therapy
     Dosage: 500 MILLIGRAM, TWICE A DAY
     Route: 065
  16. ZOLPIDEM [Concomitant]
     Active Substance: ZOLPIDEM TARTRATE
     Indication: Product used for unknown indication
     Dosage: 10 MILLIGRAM, AT BED TIME
     Route: 065

REACTIONS (1)
  - Mania [Recovered/Resolved]
